FAERS Safety Report 25730778 (Version 1)
Quarter: 2025Q3

REPORT INFORMATION
  Report Type: Spontaneous
  Country: US (occurrence: None)
  Receive Date: 20250827
  Receipt Date: 20250827
  Transmission Date: 20251021
  Serious: Yes (Death, Life-Threatening)
  Sender: FDA-CTU
  Company Number: None

PATIENT
  Age: 77 Year
  Sex: Male
  Weight: 91 kg

DRUGS (1)
  1. CABOZANTINIB [Suspect]
     Active Substance: CABOZANTINIB
     Indication: Hepatocellular carcinoma
     Dosage: FREQUENCY : DAILY;?
     Route: 048
     Dates: start: 20250212, end: 20250325

REACTIONS (8)
  - Dermatitis bullous [None]
  - Rash [None]
  - Rash [None]
  - Rash [None]
  - Rash [None]
  - Skin ulcer [None]
  - Toxicity to various agents [None]
  - Activities of daily living decreased [None]

NARRATIVE: CASE EVENT DATE: 20250325
